FAERS Safety Report 8063867-4 (Version None)
Quarter: 2012Q1

REPORT INFORMATION
  Report Type: 
  Country: None (occurrence: None)
  Receive Date: 20120123
  Receipt Date: 20120116
  Transmission Date: 20120608
  Serious: Yes (Life-Threatening, Hospitalization, Other)
  Sender: FDA-Public Use
  Company Number: US-BAYER-2011-042304

PATIENT
  Age: 18 Year
  Sex: Female
  Weight: 55.329 kg

DRUGS (10)
  1. PROAIR HFA [Concomitant]
     Dosage: UNK
     Dates: start: 20070701, end: 20091201
  2. ACETAMINOPHEN [Concomitant]
     Indication: PAIN
  3. ALBUTEROL [Concomitant]
     Indication: PAIN
     Dosage: UNK
     Dates: start: 20040901
  4. FLEXERIL [Concomitant]
     Indication: PAIN
  5. NAPROXEN SODIUM W/PSEUDOEPHEDRINE HCL [Concomitant]
     Indication: PAIN
  6. AZITHROMYCIN [Concomitant]
     Dosage: UNK
     Dates: start: 20080601
  7. YAZ [Suspect]
  8. TYLENOL PM [Concomitant]
     Indication: PAIN
     Dosage: UNK
     Dates: start: 20040101
  9. YAZ [Suspect]
     Indication: PREMENSTRUAL SYNDROME
     Dosage: UNK
     Dates: start: 20070920, end: 20090731
  10. TAMIFLU [Concomitant]
     Indication: RESPIRATORY DISORDER
     Dosage: UNK
     Dates: start: 20090526

REACTIONS (18)
  - CHEST PAIN [None]
  - MUSCLE SPASMS [None]
  - BIPOLAR DISORDER [None]
  - FEELING ABNORMAL [None]
  - ANXIETY [None]
  - ATELECTASIS [None]
  - ABDOMINAL PAIN LOWER [None]
  - ABASIA [None]
  - COORDINATION ABNORMAL [None]
  - PAIN [None]
  - EMOTIONAL DISTRESS [None]
  - PULMONARY EMBOLISM [None]
  - DYSPNOEA [None]
  - BACK PAIN [None]
  - APHONIA [None]
  - ASTHENIA [None]
  - DEPRESSION [None]
  - INJURY [None]
